FAERS Safety Report 5098897-8 (Version None)
Quarter: 2006Q3

REPORT INFORMATION
  Report Type: 
  Country: None (occurrence: None)
  Receive Date: 20060907
  Receipt Date: 20060830
  Transmission Date: 20061208
  Serious: Yes (Other)
  Sender: FDA-Public Use
  Company Number: PHFR2006GB02678

PATIENT
  Sex: Male
  Weight: 2.8 kg

DRUGS (2)
  1. BACLOFEN [Suspect]
     Route: 064
  2. ANTIBIOTICS [Concomitant]
     Route: 064

REACTIONS (2)
  - DRUG EXPOSURE DURING PREGNANCY [None]
  - PREMATURE BABY [None]
